FAERS Safety Report 8204686-5 (Version None)
Quarter: 2012Q1

REPORT INFORMATION
  Report Type: 
  Country: None (occurrence: None)
  Receive Date: 20120313
  Receipt Date: 20120305
  Transmission Date: 20120608
  Serious: Yes (Other)
  Sender: FDA-Public Use
  Company Number: JP-SANOFI-AVENTIS-2012SA014495

PATIENT
  Age: 61 Year
  Sex: Male
  Weight: 49.6 kg

DRUGS (6)
  1. CISPLATIN [Suspect]
     Dosage: RECEIVED TOTAL 4 CYCLES.
     Route: 065
  2. GRANISETRON [Concomitant]
  3. CISPLATIN [Suspect]
     Route: 065
  4. DOCETAXEL [Suspect]
     Dosage: FREQUENCY: ON DAY 1 AND RECEIVED TOTAL 4 CYCLES.
     Route: 065
  5. DOCETAXEL [Suspect]
     Dosage: FREQUENCY: ON DAY 1.
     Route: 065
  6. DEXAMETHASONE [Concomitant]

REACTIONS (8)
  - SUPERIOR MESENTERIC ARTERY SYNDROME [None]
  - GASTROINTESTINAL SOUNDS ABNORMAL [None]
  - ABDOMINAL DISTENSION [None]
  - NAUSEA [None]
  - WEIGHT DECREASED [None]
  - DECREASED APPETITE [None]
  - VOMITING [None]
  - ABDOMINAL PAIN UPPER [None]
